FAERS Safety Report 5196934-3 (Version None)
Quarter: 2006Q4

REPORT INFORMATION
  Report Type: 
  Country: None (occurrence: None)
  Receive Date: 20061227
  Receipt Date: 20061219
  Transmission Date: 20070319
  Serious: Yes (Death)
  Sender: FDA-Public Use
  Company Number: 2006154534

PATIENT
  Age: 50 Year
  Sex: Female

DRUGS (2)
  1. ZOLOFT [Suspect]
  2. XANAX [Suspect]

REACTIONS (1)
  - COMPLETED SUICIDE [None]
